FAERS Safety Report 11562332 (Version 1)
Quarter: 2015Q3

REPORT INFORMATION
  Report Type: Report from Study
  Country: US (occurrence: US)
  Receive Date: 20150928
  Receipt Date: 20150928
  Transmission Date: 20151125
  Serious: Yes (Hospitalization)
  Sender: FDA-Public Use
  Company Number: US-NPS_PHARMACEUTICALS-002061

PATIENT
  Sex: Female

DRUGS (14)
  1. ESCITALOPRAM [Concomitant]
     Active Substance: ESCITALOPRAM OXALATE
  2. QUESTRAN [Concomitant]
     Active Substance: CHOLESTYRAMINE
  3. GABAPENTIN. [Concomitant]
     Active Substance: GABAPENTIN
  4. DIPHENOXYLATE [Concomitant]
     Active Substance: DIPHENOXYLATE
     Route: 048
  5. CLONIDINE. [Concomitant]
     Active Substance: CLONIDINE
     Dosage: GIVE ONLY WHEN BP IS OVER 150
  6. LOPERAMIDE [Concomitant]
     Active Substance: LOPERAMIDE
     Route: 048
  7. SLOW MAG [Concomitant]
     Active Substance: MAGNESIUM CHLORIDE
  8. TPN [Concomitant]
     Active Substance: AMINO ACIDS\DEXTROSE\ELECTROLYTES NOS\SOYBEAN OIL
     Indication: MEDICAL DIET
     Dosage: 10 HOURS PER NIGHT
  9. OXYCODONE [Concomitant]
     Active Substance: OXYCODONE
     Dosage: AS NEEDED EVERY 6 HOURS
  10. AMLODIPINE [Concomitant]
     Active Substance: AMLODIPINE BESYLATE
  11. GATTEX [Suspect]
     Active Substance: TEDUGLUTIDE\WATER
     Indication: SHORT-BOWEL SYNDROME
     Route: 058
     Dates: start: 20150423
  12. OMEPRAZOLE. [Concomitant]
     Active Substance: OMEPRAZOLE
     Dosage: MORNING / BEDTIME
     Route: 048
  13. OLANZAPINE. [Concomitant]
     Active Substance: OLANZAPINE
     Dosage: AT BEDTIME
     Route: 058
  14. XANAX [Concomitant]
     Active Substance: ALPRAZOLAM
     Dosage: 2 TIMES AS NEEDED

REACTIONS (6)
  - Blood urea increased [Not Recovered/Not Resolved]
  - Skin warm [Unknown]
  - Drug dose omission [Unknown]
  - Confusional state [Unknown]
  - Hypersomnia [Unknown]
  - Tonic clonic movements [Unknown]

NARRATIVE: CASE EVENT DATE: 2015
